FAERS Safety Report 13119190 (Version 3)
Quarter: 2017Q1

REPORT INFORMATION
  Report Type: Spontaneous
  Country: GR (occurrence: GR)
  Receive Date: 20170116
  Receipt Date: 20170123
  Transmission Date: 20170428
  Serious: Yes (Death, Other)
  Sender: FDA-Public Use
  Company Number: GR-ABBVIE-17P-066-1838456-00

PATIENT
  Age: 41 Year
  Sex: Female

DRUGS (2)
  1. ULTANE [Suspect]
     Active Substance: SEVOFLURANE
     Indication: ORTHOPAEDIC PROCEDURE
     Route: 065
  2. ULTANE [Suspect]
     Active Substance: SEVOFLURANE
     Indication: ANAESTHESIA
     Dosage: BETWEEN 21NOV2016 AND 1DEC2016
     Route: 065

REACTIONS (11)
  - Renal impairment [Unknown]
  - Nosocomial infection [Fatal]
  - White blood cell count abnormal [Unknown]
  - White blood cell count decreased [Unknown]
  - Coagulopathy [Unknown]
  - Thrombocytopenia [Unknown]
  - Hepatocellular injury [Unknown]
  - Hepatic enzyme increased [Unknown]
  - Blood bilirubin increased [Unknown]
  - Septic shock [Unknown]
  - Acute respiratory distress syndrome [Unknown]
